FAERS Safety Report 6209825-3 (Version None)
Quarter: 2009Q2

REPORT INFORMATION
  Report Type: 
  Country: None (occurrence: None)
  Receive Date: 20090601
  Receipt Date: 20090522
  Transmission Date: 20091009
  Serious: Yes (Other)
  Sender: FDA-Public Use
  Company Number: PHEH2009US05223

PATIENT
  Sex: Female

DRUGS (9)
  1. RECLAST [Suspect]
     Dosage: UNK
     Dates: start: 20090501
  2. LIPITOR [Concomitant]
  3. UNSPECIFIED NERVE PILL [Concomitant]
  4. ZENEX [Concomitant]
  5. EYE VITAMINS [Concomitant]
  6. ANXIOLYTICS [Concomitant]
  7. STOOL SOFTENER [Concomitant]
  8. ASPIRIN [Concomitant]
  9. HORMONES NOS [Concomitant]

REACTIONS (4)
  - BLOOD CALCIUM DECREASED [None]
  - ERYTHEMA [None]
  - OEDEMA PERIPHERAL [None]
  - POOR PERIPHERAL CIRCULATION [None]
